FAERS Safety Report 19494249 (Version 1)
Quarter: 2021Q3

REPORT INFORMATION
  Report Type: Spontaneous
  Country: UA (occurrence: UA)
  Receive Date: 20210705
  Receipt Date: 20210705
  Transmission Date: 20211014
  Serious: Yes (Other)
  Sender: FDA-Public Use
  Company Number: UA-US-PROVELL PHARMACEUTICALS LLC-9248246

PATIENT
  Sex: Female

DRUGS (2)
  1. BISOPROLOL [Suspect]
     Active Substance: BISOPROLOL
     Indication: TACHYCARDIA
  2. EUTHYROX [Suspect]
     Active Substance: LEVOTHYROXINE SODIUM
     Indication: HYPOTHYROIDISM
     Route: 048

REACTIONS (5)
  - Hypothyroidism [Unknown]
  - Off label use [Unknown]
  - Treatment noncompliance [Unknown]
  - Tachycardia [Unknown]
  - Condition aggravated [Unknown]
